FAERS Safety Report 7085185-3 (Version None)
Quarter: 2010Q4

REPORT INFORMATION
  Report Type: 
  Country: None (occurrence: None)
  Receive Date: 20101105
  Receipt Date: 20101029
  Transmission Date: 20110411
  Serious: Yes (Hospitalization, Other)
  Sender: FDA-Public Use
  Company Number: DE-ABBOTT-09P-062-0583694-00

PATIENT
  Age: 70 Year
  Sex: Male
  Weight: 88 kg

DRUGS (14)
  1. AKINETON [Suspect]
     Indication: PRODUCT USED FOR UNKNOWN INDICATION
     Dosage: 2 MG DAILY
     Route: 048
     Dates: start: 20081201, end: 20090217
  2. DOMINAL [Suspect]
     Indication: PRODUCT USED FOR UNKNOWN INDICATION
     Dosage: 80 MG DAILY
     Route: 048
     Dates: end: 20090203
  3. HALDOL [Suspect]
     Indication: PRODUCT USED FOR UNKNOWN INDICATION
     Dosage: 5 MG DAILY
     Route: 048
     Dates: end: 20090204
  4. HALDOL [Suspect]
     Dosage: 4 MG DAILY
     Route: 048
     Dates: start: 20090505
  5. HALDOL [Suspect]
     Dosage: 2 MG DAILY
     Route: 048
     Dates: start: 20090206, end: 20090209
  6. HALDOL [Suspect]
     Dosage: 1 MG DAILY
     Dates: start: 20090210, end: 20090216
  7. PAROXETINE HCL [Suspect]
     Indication: PRODUCT USED FOR UNKNOWN INDICATION
     Dosage: 40 MG DAILY
     Route: 048
     Dates: end: 20090305
  8. PAROXETINE HCL [Suspect]
     Dosage: 50 MG DAILY
     Route: 048
     Dates: start: 20090306
  9. SEROQUEL [Suspect]
     Indication: PRODUCT USED FOR UNKNOWN INDICATION
     Dosage: 200 MG DAILY
     Route: 048
     Dates: end: 20090311
  10. SEROQUEL [Suspect]
     Dosage: 250 MG DAILY
     Route: 048
     Dates: start: 20090312
  11. LORAZEPAM [Concomitant]
     Indication: PRODUCT USED FOR UNKNOWN INDICATION
     Dosage: 4 MG DAILY
     Route: 048
     Dates: start: 20081201, end: 20090226
  12. LORAZEPAM [Concomitant]
     Dosage: 3 MG DAILY
     Dates: start: 20090227
  13. CONCOR [Concomitant]
     Indication: PRODUCT USED FOR UNKNOWN INDICATION
     Dosage: 2.5 MG DAILY
  14. SIMVASTATIN [Concomitant]
     Indication: PRODUCT USED FOR UNKNOWN INDICATION
     Dosage: 20 MG DAILY

REACTIONS (12)
  - AGITATION [None]
  - COGNITIVE DISORDER [None]
  - CONFUSIONAL STATE [None]
  - DELIRIUM [None]
  - DELUSION [None]
  - DEPRESSED MOOD [None]
  - DEPRESSIVE SYMPTOM [None]
  - DISORIENTATION [None]
  - MEMORY IMPAIRMENT [None]
  - RESTLESSNESS [None]
  - SOMATOFORM DISORDER [None]
  - SUICIDAL IDEATION [None]
